FAERS Safety Report 6233029-1 (Version None)
Quarter: 2009Q2

REPORT INFORMATION
  Report Type: 
  Country: None (occurrence: None)
  Receive Date: 20090617
  Receipt Date: 20090610
  Transmission Date: 20091009
  Serious: Yes (Hospitalization, Other)
  Sender: FDA-Public Use
  Company Number: B0578193A

PATIENT
  Age: 74 Year
  Sex: Male

DRUGS (1)
  1. FLUTIDE DISKUS [Suspect]
     Indication: ASTHMA
     Dosage: 400MCG TWICE PER DAY
     Route: 055

REACTIONS (2)
  - BLOOD CORTISOL DECREASED [None]
  - CUSHING'S SYNDROME [None]
